FAERS Safety Report 21521890 (Version 2)
Quarter: 2022Q4

REPORT INFORMATION
  Report Type: Spontaneous
  Country: BR (occurrence: BR)
  Receive Date: 20221028
  Receipt Date: 20221123
  Transmission Date: 20230112
  Serious: Yes (Other)
  Sender: FDA-Public Use
  Company Number: BR-PFIZER INC-PV202200091303

PATIENT
  Age: 71 Year
  Sex: Female
  Weight: 53 kg

DRUGS (5)
  1. INFLIXIMAB [Suspect]
     Active Substance: INFLIXIMAB
     Indication: Crohn^s disease
     Dosage: 3 DF, CYCLIC (3 AMPOULES EVERY 40 DAYS, 3 MONTHS AGO)
     Route: 042
  2. INFLIXIMAB [Suspect]
     Active Substance: INFLIXIMAB
     Dosage: 3 DF, CYCLIC (3 AMPOULES EVERY 40 DAYS)
     Route: 042
     Dates: start: 20221005
  3. ADALIMUMAB [Suspect]
     Active Substance: ADALIMUMAB
     Dosage: UNK
     Route: 065
  4. ZOLPIDEM [Concomitant]
     Active Substance: ZOLPIDEM TARTRATE
     Indication: Sleep apnoea syndrome
     Dosage: 10 MILLIGRAM
     Dates: start: 2017
  5. ATENOLOL [Concomitant]
     Active Substance: ATENOLOL
     Indication: Hypertension
     Dosage: 25 MILLIGRAM
     Dates: start: 2012

REACTIONS (8)
  - Haematochezia [Unknown]
  - Arrhythmia [Recovered/Resolved]
  - Abdominal pain upper [Unknown]
  - Infusion related reaction [Unknown]
  - Erythema [Recovered/Resolved]
  - Drug ineffective [Unknown]
  - Faecal calprotectin increased [Unknown]
  - Off label use [Unknown]

NARRATIVE: CASE EVENT DATE: 20220910
